FAERS Safety Report 23135724 (Version 1)
Quarter: 2023Q4

REPORT INFORMATION
  Report Type: Spontaneous
  Country: US (occurrence: US)
  Receive Date: 20231101
  Receipt Date: 20231101
  Transmission Date: 20240109
  Serious: No
  Sender: FDA-Public Use
  Company Number: US-GILEAD-2023-0649129

PATIENT
  Sex: Male

DRUGS (4)
  1. LENACAPAVIR [Suspect]
     Active Substance: LENACAPAVIR
     Indication: Product used for unknown indication
     Route: 065
  2. MARAVIROC [Concomitant]
     Active Substance: MARAVIROC
  3. RUKOBIA [Concomitant]
     Active Substance: FOSTEMSAVIR TROMETHAMINE
  4. PIFELTRO [Concomitant]
     Active Substance: DORAVIRINE

REACTIONS (1)
  - Treatment failure [Unknown]
